FAERS Safety Report 12219021 (Version 1)
Quarter: 2016Q1

REPORT INFORMATION
  Report Type: Spontaneous
  Country: US (occurrence: US)
  Receive Date: 20160329
  Receipt Date: 20160329
  Transmission Date: 20160526
  Serious: Yes (Hospitalization)
  Sender: FDA-Public Use
  Company Number: US-GLAXOSMITHKLINE-US2016042552

PATIENT
  Age: 75 Year
  Sex: Female

DRUGS (14)
  1. LEVOTHYROXINE. [Concomitant]
     Active Substance: LEVOTHYROXINE
  2. VITAMIN D3 [Concomitant]
     Active Substance: CHOLECALCIFEROL
  3. CINNAMON SUPPLEMENT [Concomitant]
  4. COENZYME Q10 [Concomitant]
     Active Substance: UBIDECARENONE
  5. GLUCOPHAGE [Concomitant]
     Active Substance: METFORMIN HYDROCHLORIDE
  6. NORCO [Concomitant]
     Active Substance: ACETAMINOPHEN\HYDROCODONE BITARTRATE
  7. SERTRALINE [Concomitant]
     Active Substance: SERTRALINE HYDROCHLORIDE
  8. ZETIA [Concomitant]
     Active Substance: EZETIMIBE
  9. LOSARTAN. [Concomitant]
     Active Substance: LOSARTAN
  10. ALENDRONATE [Concomitant]
     Active Substance: ALENDRONATE SODIUM
  11. LOVAZA [Suspect]
     Active Substance: OMEGA-3-ACID ETHYL ESTERS
     Indication: SUPPLEMENTATION THERAPY
     Dates: start: 2011
  12. BRIMONIDINE TARTRATE. [Concomitant]
     Active Substance: BRIMONIDINE TARTRATE
  13. MAGNESIUM SUPPLEMENT [Concomitant]
  14. LOVASTATIN. [Concomitant]
     Active Substance: LOVASTATIN

REACTIONS (3)
  - Arthropathy [Not Recovered/Not Resolved]
  - Condition aggravated [Not Recovered/Not Resolved]
  - Knee operation [Recovered/Resolved]

NARRATIVE: CASE EVENT DATE: 20160105
